FAERS Safety Report 11082145 (Version 1)
Quarter: 2015Q2

REPORT INFORMATION
  Report Type: Spontaneous
  Country: US (occurrence: None)
  Receive Date: 20150430
  Receipt Date: 20150430
  Transmission Date: 20150821
  Serious: Yes (Other)
  Sender: FDA-Public Use
  Company Number: None

PATIENT
  Age: 58 Year
  Sex: Male

DRUGS (3)
  1. ATROPINE [Concomitant]
     Active Substance: ATROPINE
  2. DIPHENOXYLATE [Concomitant]
     Active Substance: DIPHENOXYLATE
  3. SPRYCEL [Suspect]
     Active Substance: DASATINIB
     Indication: NEOPLASM MALIGNANT
     Route: 048
     Dates: start: 20150310

REACTIONS (1)
  - Diarrhoea [None]
